FAERS Safety Report 7864382-0 (Version None)
Quarter: 2011Q4

REPORT INFORMATION
  Report Type: 
  Country: None (occurrence: None)
  Receive Date: 20111028
  Receipt Date: 20111019
  Transmission Date: 20120403
  Serious: Yes (Hospitalization)
  Sender: FDA-Public Use
  Company Number: IE-UCBSA-035676

PATIENT
  Sex: Male
  Weight: 88 kg

DRUGS (16)
  1. NEUPRO [Suspect]
     Indication: PARKINSON'S DISEASE
     Route: 062
  2. NEUPRO [Suspect]
     Dosage: DOSE REDUCED
     Route: 062
     Dates: start: 20110608, end: 20110615
  3. BUMETANIDE [Concomitant]
     Indication: FLUID RETENTION
     Route: 048
  4. PULMICORT [Concomitant]
     Indication: ASTHMA
     Dosage: 0.5 MG/2 ML, ONE NEB TWICE DAILY
  5. FLUTICASONE PROPIONATE/SALMETEROL [Concomitant]
     Indication: ASTHMA
     Dosage: 500, ONE PUFF TWICE DAILY
  6. AZILECT [Concomitant]
     Indication: PARKINSON'S DISEASE
     Route: 048
  7. SERTRALINE HYDROCHLORIDE [Concomitant]
     Indication: DEPRESSION
     Route: 048
  8. ACTONEL [Concomitant]
     Indication: OSTEOPOROSIS
     Route: 048
  9. STALEVO 100 [Concomitant]
     Indication: PARKINSON'S DISEASE
     Dosage: DOSE PER INTAKE:150/37.5/200 MG : TOTAL DAILY DOSE : 600/150/800 MG
     Route: 048
  10. BUMETANIDE [Concomitant]
     Indication: OEDEMA
     Route: 048
  11. COMBIVENT [Concomitant]
     Indication: ASTHMA
     Dosage: ONE NEB ONCE DAILY
  12. PARALIEF [Concomitant]
     Indication: PAIN
     Dosage: 500 MG 2 QDS AS NEEDED
  13. NEXIUM [Concomitant]
     Indication: GASTROOESOPHAGEAL REFLUX DISEASE
     Route: 048
  14. SPIRIVA RESPIMET [Concomitant]
     Indication: ASTHMA
     Dosage: 2 PUFFS ONCE DAILY
  15. TRAMADOL HCL [Concomitant]
     Indication: PAIN
     Dosage: 50 MG TWICE DAILY AS NEEDED
  16. LERCANIDIPINE [Concomitant]
     Indication: HYPERTENSION
     Route: 048

REACTIONS (5)
  - LETHARGY [None]
  - DYSKINESIA [None]
  - JAW DISORDER [None]
  - SOMNOLENCE [None]
  - COORDINATION ABNORMAL [None]
